FAERS Safety Report 23390102 (Version 1)
Quarter: 2024Q1

REPORT INFORMATION
  Report Type: Spontaneous
  Country: CH (occurrence: CH)
  Receive Date: 20240111
  Receipt Date: 20240111
  Transmission Date: 20240409
  Serious: Yes (Hospitalization)
  Sender: FDA-Public Use
  Company Number: None

PATIENT
  Age: 59 Year
  Sex: Female

DRUGS (14)
  1. OLANZAPINE [Suspect]
     Active Substance: OLANZAPINE
     Indication: Product used for unknown indication
     Dosage: DAILY DOSE: 10 MILLIGRAM
  2. FENTANYL [Suspect]
     Active Substance: FENTANYL\FENTANYL CITRATE
     Indication: Product used for unknown indication
     Dosage: EVERY 72H
  3. POLIDOCANOL\UREA [Suspect]
     Active Substance: POLIDOCANOL\UREA
     Indication: Product used for unknown indication
  4. LACTITOL [Suspect]
     Active Substance: LACTITOL
     Indication: Product used for unknown indication
     Dosage: 20 ML, UNK?DAILY DOSE: 60 MILLILITRE
  5. HYDROMORPHONE [Suspect]
     Active Substance: HYDROMORPHONE
     Indication: Product used for unknown indication
     Dosage: 1.3 MG, UNK
  6. SODIUM PICOSULFATE [Suspect]
     Active Substance: SODIUM PICOSULFATE
     Indication: Product used for unknown indication
     Dosage: AT NIGHT?DAILY DOSE: 10 DROP
  7. AMITRIPTYLINE [Concomitant]
     Active Substance: AMITRIPTYLINE
     Indication: Product used for unknown indication
     Dates: start: 202303
  8. Novalgin [Concomitant]
     Indication: Product used for unknown indication
     Dates: start: 202212
  9. ESOMEPRAZOLE [Concomitant]
     Active Substance: ESOMEPRAZOLE
     Indication: Product used for unknown indication
     Dates: start: 202212
  10. DIMETHINDENE [Concomitant]
     Active Substance: DIMETHINDENE
     Indication: Product used for unknown indication
  11. Temesta [Concomitant]
     Indication: Product used for unknown indication
     Dosage: DAILY DOSE: 2 MILLIGRAM
  12. Carboplatin pemetrexed [Concomitant]
     Indication: Product used for unknown indication
     Dosage: TID
     Dates: start: 20230313, end: 20230404
  13. DOCETAXELUM [Concomitant]
     Indication: Product used for unknown indication
     Dates: start: 20230424, end: 20230515
  14. PEMBROLIZUMAB [Concomitant]
     Active Substance: PEMBROLIZUMAB
     Indication: Product used for unknown indication
     Dates: start: 20230404

REACTIONS (4)
  - Hepatitis cholestatic [Recovering/Resolving]
  - Pruritus [Recovering/Resolving]
  - Sleep disorder [Recovering/Resolving]
  - Nausea [Recovering/Resolving]

NARRATIVE: CASE EVENT DATE: 20230606
